FAERS Safety Report 9035084 (Version 1)
Quarter: 2013Q1

REPORT INFORMATION
  Report Type: Report from Study
  Country: US (occurrence: US)
  Receive Date: 20130129
  Receipt Date: 20130129
  Transmission Date: 20140127
  Serious: No
  Sender: FDA-Public Use
  Company Number: US-ABBOTT-12P-163-0889164-00

PATIENT
  Age: 63 Year
  Sex: Female

DRUGS (13)
  1. HUMIRA 40 MG/0.8 ML PEN [Suspect]
     Indication: COLITIS ULCERATIVE
  2. VITAMIN C [Concomitant]
     Indication: PRODUCT USED FOR UNKNOWN INDICATION
     Dosage: DAILY
  3. VITAMIN E [Concomitant]
     Indication: PRODUCT USED FOR UNKNOWN INDICATION
     Dosage: DAILY
  4. VITAMIN D3 [Concomitant]
     Indication: PRODUCT USED FOR UNKNOWN INDICATION
     Dosage: DAILY
  5. DIGESTIVE ENZYMES [Concomitant]
     Indication: PRODUCT USED FOR UNKNOWN INDICATION
     Dosage: WITH EVERY MEAL
  6. PROBIOTICS [Concomitant]
     Indication: PRODUCT USED FOR UNKNOWN INDICATION
     Dosage: EVERY MORNING AND EVERY NIGHT
  7. D-MANNOSE [Concomitant]
     Indication: PROPHYLAXIS URINARY TRACT INFECTION
     Dosage: DAILY
  8. LUTEIN [Concomitant]
     Indication: EYE DISORDER
     Dosage: DAILY
  9. RECLAST [Concomitant]
     Indication: OSTEOPOROSIS
     Dosage: EVERY YEAR, LAST GIVEN IN SEP 2011
     Route: 050
  10. CALCIUM [Concomitant]
     Indication: PRODUCT USED FOR UNKNOWN INDICATION
     Dosage: DAILY
  11. VITAMIN B12 [Concomitant]
     Indication: PRODUCT USED FOR UNKNOWN INDICATION
     Route: 060
  12. TYLENOL PM [Concomitant]
     Indication: HYPERSENSITIVITY
     Dosage: WITH HUMIRA
  13. TYLENOL PM [Concomitant]
     Indication: PAIN PROPHYLAXIS

REACTIONS (6)
  - Off label use [Recovering/Resolving]
  - Vertigo [Unknown]
  - Vomiting [Unknown]
  - Dizziness [Unknown]
  - Fall [Unknown]
  - Feeling abnormal [Recovering/Resolving]
